FAERS Safety Report 15722194 (Version 2)
Quarter: 2019Q1

REPORT INFORMATION
  Report Type: Report from Study
  Country: US (occurrence: US)
  Receive Date: 20181214
  Receipt Date: 20190228
  Transmission Date: 20190417
  Serious: Yes (Other)
  Sender: FDA-Public Use
  Company Number: US-EMD SERONO-9057652

PATIENT
  Sex: Male
  Weight: 70 kg

DRUGS (4)
  1. MARIJUANA [Concomitant]
     Active Substance: CANNABIS SATIVA SUBSP. INDICA TOP
     Indication: MULTIPLE SCLEROSIS
     Dosage: MEDICAL MARIJUANA
     Dates: start: 2018
  2. ZOLOFT [Concomitant]
     Active Substance: SERTRALINE HYDROCHLORIDE
     Indication: DEPRESSION
     Route: 048
     Dates: start: 2017
  3. REBIF [Suspect]
     Active Substance: INTERFERON BETA-1A
     Indication: MULTIPLE SCLEROSIS
     Route: 058
     Dates: start: 20151211
  4. REBIF [Suspect]
     Active Substance: INTERFERON BETA-1A
     Route: 058
     Dates: start: 2017

REACTIONS (4)
  - Injection site erythema [Recovering/Resolving]
  - Urinary retention [Recovering/Resolving]
  - Urinary tract disorder [Not Recovered/Not Resolved]
  - Bowel movement irregularity [Recovered/Resolved]
